FAERS Safety Report 10550818 (Version 8)
Quarter: 2015Q3

REPORT INFORMATION
  Report Type: Report from Study
  Country: CA (occurrence: CA)
  Receive Date: 20141029
  Receipt Date: 20150731
  Transmission Date: 20151125
  Serious: Yes (Other)
  Sender: FDA-Public Use
  Company Number: CA-ROCHE-1422376

PATIENT
  Age: 51 Year
  Sex: Female

DRUGS (11)
  1. CRESTOR [Concomitant]
     Active Substance: ROSUVASTATIN CALCIUM
  2. VOLTAREN [Concomitant]
     Active Substance: DICLOFENAC SODIUM
  3. FLEXERIL (CANADA) [Concomitant]
  4. TORADOL [Suspect]
     Active Substance: KETOROLAC TROMETHAMINE
     Indication: PLEURISY
     Route: 042
  5. LOSEC [Concomitant]
     Active Substance: OMEPRAZOLE
  6. ACTEMRA [Suspect]
     Active Substance: TOCILIZUMAB
     Indication: RHEUMATOID ARTHRITIS
     Route: 042
     Dates: start: 20140501
  7. ZOPLICONE [Concomitant]
     Active Substance: ZOPICLONE
  8. METHOTREXATE [Concomitant]
     Active Substance: METHOTREXATE
  9. EFFEXOR [Concomitant]
     Active Substance: VENLAFAXINE HYDROCHLORIDE
  10. FOLIC ACID. [Concomitant]
     Active Substance: FOLIC ACID
  11. ENBREL [Concomitant]
     Active Substance: ETANERCEPT

REACTIONS (8)
  - Drug hypersensitivity [Unknown]
  - Skin exfoliation [Recovering/Resolving]
  - Urinary tract infection [Not Recovered/Not Resolved]
  - Cystitis [Unknown]
  - Neuralgia [Not Recovered/Not Resolved]
  - Abdominal pain [Recovered/Resolved]
  - Malaise [Recovering/Resolving]
  - Fungal infection [Recovered/Resolved]

NARRATIVE: CASE EVENT DATE: 20140714
